FAERS Safety Report 7681314-9 (Version None)
Quarter: 2011Q3

REPORT INFORMATION
  Report Type: 
  Country: None (occurrence: None)
  Receive Date: 20110812
  Receipt Date: 20110428
  Transmission Date: 20111222
  Serious: Yes (Death)
  Sender: FDA-Public Use
  Company Number: GB-BAXTER-2011BH026259

PATIENT
  Age: 44 Year
  Sex: Male

DRUGS (13)
  1. VINCRISTINE [Suspect]
     Indication: BURKITT'S LYMPHOMA
     Route: 065
  2. CYTARABINE [Suspect]
     Indication: BURKITT'S LYMPHOMA
     Route: 065
  3. DOXORUBICIN HCL [Suspect]
     Indication: BURKITT'S LYMPHOMA
     Route: 042
  4. DAURUNAVIR [Concomitant]
     Indication: HIV INFECTION
     Route: 065
  5. METHOTREXATE [Suspect]
     Indication: BURKITT'S LYMPHOMA
     Route: 065
  6. ACYCLOVIR [Concomitant]
     Indication: VIITH NERVE PARALYSIS
     Route: 065
  7. CYCLOPHOSPHAMIDE [Suspect]
     Indication: BURKITT'S LYMPHOMA
     Route: 065
  8. PREDNISOLONE [Concomitant]
     Indication: VIITH NERVE PARALYSIS
     Route: 065
  9. RITONAVIR [Concomitant]
     Indication: HIV INFECTION
     Route: 065
  10. ABACAVIR [Concomitant]
     Indication: HIV INFECTION
     Route: 065
  11. IFOSFAMIDE [Suspect]
     Indication: BURKITT'S LYMPHOMA
     Route: 065
  12. ETOPOSIDE [Suspect]
     Indication: BURKITT'S LYMPHOMA
     Route: 065
  13. LAMIVUDINE [Concomitant]
     Indication: HIV INFECTION
     Route: 065

REACTIONS (1)
  - NEOPLASM MALIGNANT [None]
